FAERS Safety Report 9309805 (Version 2)
Quarter: 2013Q2

REPORT INFORMATION
  Report Type: Spontaneous
  Country: US (occurrence: US)
  Receive Date: 20130525
  Receipt Date: 20130527
  Transmission Date: 20140414
  Serious: Yes (Other)
  Sender: FDA-Public Use
  Company Number: US-BRISTOL-MYERS SQUIBB COMPANY-18587592

PATIENT
  Age: 68 Year
  Sex: Female
  Weight: 85.71 kg

DRUGS (12)
  1. BYDUREON [Suspect]
     Indication: TYPE 2 DIABETES MELLITUS
     Route: 058
     Dates: start: 20121218, end: 20130129
  2. GLUMETZA [Concomitant]
     Indication: TYPE 2 DIABETES MELLITUS
     Route: 048
     Dates: start: 20121218
  3. METFORMIN HCL [Concomitant]
     Indication: TYPE 2 DIABETES MELLITUS
     Route: 048
  4. ONGLYZA TABS [Concomitant]
     Indication: TYPE 2 DIABETES MELLITUS
     Route: 048
  5. GLIMEPIRIDE [Concomitant]
     Indication: TYPE 2 DIABETES MELLITUS
     Route: 048
  6. GLIMEPIRIDE [Concomitant]
     Indication: TYPE 2 DIABETES MELLITUS
     Route: 048
  7. VALIUM [Concomitant]
     Indication: DEPRESSION
     Route: 048
  8. AMBIEN [Concomitant]
     Route: 048
  9. CLONIDINE [Concomitant]
  10. SYNTHROID [Concomitant]
  11. SINGULAIR [Concomitant]
     Route: 048
  12. AMLODIPINE [Concomitant]
     Route: 048

REACTIONS (16)
  - Depression suicidal [Recovered/Resolved]
  - Cardiac flutter [Recovered/Resolved]
  - Blood glucose increased [Recovered/Resolved]
  - Feeling abnormal [Recovered/Resolved]
  - Weight decreased [Not Recovered/Not Resolved]
  - Tremor [Unknown]
  - Dizziness [Recovered/Resolved]
  - Injection site nodule [Not Recovered/Not Resolved]
  - Injection site discolouration [Not Recovered/Not Resolved]
  - Blood glucose decreased [Recovering/Resolving]
  - Asthenia [Recovered/Resolved]
  - Drug ineffective [Recovered/Resolved]
  - Presyncope [Recovered/Resolved]
  - Thirst [Recovered/Resolved]
  - Flushing [Recovered/Resolved]
  - Skin papilloma [Recovered/Resolved]
